FAERS Safety Report 14396064 (Version 1)
Quarter: 2018Q1

REPORT INFORMATION
  Report Type: Spontaneous
  Country: US (occurrence: US)
  Receive Date: 20180116
  Receipt Date: 20180116
  Transmission Date: 20180509
  Serious: No
  Sender: FDA-Public Use
  Company Number: US-ALLERGAN-1723685US

PATIENT
  Age: 28 Year
  Sex: Female
  Weight: 54.88 kg

DRUGS (11)
  1. BOTOX [Suspect]
     Active Substance: ONABOTULINUMTOXINA
     Dosage: 400 UNITS, SINGLE
     Route: 030
     Dates: start: 20170518, end: 20170518
  2. BOTOX [Suspect]
     Active Substance: ONABOTULINUMTOXINA
     Dosage: 300 UNITS, SINGLE
     Route: 030
     Dates: start: 20170518, end: 20170518
  3. BOTOX [Suspect]
     Active Substance: ONABOTULINUMTOXINA
     Dosage: UNK UNK, SINGLE
     Route: 030
     Dates: start: 201702, end: 201702
  4. BOTOX [Suspect]
     Active Substance: ONABOTULINUMTOXINA
     Dosage: 50-100 UNITS, SINGLE
     Route: 030
     Dates: start: 2016, end: 2016
  5. BOTOX [Suspect]
     Active Substance: ONABOTULINUMTOXINA
     Dosage: 300 UNITS, SINGLE
     Route: 030
     Dates: start: 20170518, end: 20170518
  6. BOTOX [Suspect]
     Active Substance: ONABOTULINUMTOXINA
     Dosage: 50-100 UNITS, SINGLE
     Route: 030
     Dates: start: 2016, end: 2016
  7. BOTOX [Suspect]
     Active Substance: ONABOTULINUMTOXINA
     Indication: HYPERHIDROSIS
     Dosage: 250 UNITS, SINGLE
     Route: 030
     Dates: start: 20170518, end: 20170518
  8. BOTOX [Suspect]
     Active Substance: ONABOTULINUMTOXINA
     Indication: HYPERHIDROSIS
     Dosage: 400 UNITS, SINGLE
     Route: 030
     Dates: start: 20170518, end: 20170518
  9. BOTOX [Suspect]
     Active Substance: ONABOTULINUMTOXINA
     Dosage: 150 UNITS, SINGLE
     Route: 030
     Dates: start: 2016, end: 2016
  10. BOTOX [Suspect]
     Active Substance: ONABOTULINUMTOXINA
     Indication: HYPERHIDROSIS
     Dosage: 250 UNITS, SINGLE
     Route: 030
     Dates: start: 20170518, end: 20170518
  11. ENSURE [Concomitant]
     Active Substance: AMINO ACIDS\DEXTROSE\ELECTROLYTES NOS\SOYBEAN OIL\VITAMINS
     Indication: PRODUCT USED FOR UNKNOWN INDICATION
     Dosage: 2 BOTTLES, QD
     Route: 048

REACTIONS (10)
  - Off label use [Unknown]
  - Visual impairment [Not Recovered/Not Resolved]
  - Myasthenia gravis [Not Recovered/Not Resolved]
  - Neck pain [Not Recovered/Not Resolved]
  - Weight decreased [Unknown]
  - Overdose [Unknown]
  - Muscular weakness [Not Recovered/Not Resolved]
  - Dysphagia [Not Recovered/Not Resolved]
  - Pain [Not Recovered/Not Resolved]
  - Fatigue [Not Recovered/Not Resolved]

NARRATIVE: CASE EVENT DATE: 20170525
